FAERS Safety Report 5633272-6 (Version None)
Quarter: 2008Q1

REPORT INFORMATION
  Report Type: 
  Country: None (occurrence: None)
  Receive Date: 20080221
  Receipt Date: 20080213
  Transmission Date: 20080703
  Serious: Yes (Hospitalization)
  Sender: FDA-Public Use
  Company Number: US-MERCK-0802USA03632

PATIENT
  Age: 54 Year
  Sex: Male

DRUGS (13)
  1. ZETIA [Suspect]
     Indication: BLOOD CHOLESTEROL INCREASED
     Route: 048
     Dates: start: 20030208
  2. LIPITOR [Concomitant]
     Indication: HYPERLIPIDAEMIA
     Route: 065
  3. PLAVIX [Concomitant]
     Indication: TRANSIENT ISCHAEMIC ATTACK
     Route: 065
  4. ALLOPURINOL [Concomitant]
     Route: 065
  5. NEXIUM [Concomitant]
     Route: 065
  6. NORVASC [Concomitant]
     Route: 065
  7. ZOLOFT [Concomitant]
     Route: 065
  8. POTASSIUM CHLORIDE [Concomitant]
     Route: 065
  9. CARDURA [Concomitant]
     Route: 065
  10. LASIX [Concomitant]
     Route: 065
  11. TOPROL-XL [Concomitant]
     Route: 065
  12. SYNTHROID [Concomitant]
     Route: 065
  13. CELEBREX [Concomitant]
     Route: 065

REACTIONS (3)
  - CHEST PAIN [None]
  - DYSPNOEA [None]
  - NAUSEA [None]
